FAERS Safety Report 5087313-8 (Version None)
Quarter: 2006Q3

REPORT INFORMATION
  Report Type: 
  Country: None (occurrence: None)
  Receive Date: 20060824
  Receipt Date: 20060504
  Transmission Date: 20061208
  Serious: Yes (Death, Hospitalization, Other)
  Sender: FDA-Public Use
  Company Number: BE-BAYER-200611927GDS

PATIENT
  Age: 55 Year
  Sex: Male

DRUGS (5)
  1. AVELOX [Suspect]
     Indication: BRONCHITIS
     Route: 048
  2. CLEXANE [Suspect]
     Indication: CARDIOVASCULAR DISORDER
     Dosage: TOTAL DAILY DOSE: 150 MG  UNIT DOSE: 150 MG
     Route: 065
  3. COVERSYL [Concomitant]
     Indication: DRUG USE FOR UNKNOWN INDICATION
     Route: 048
  4. ALDACTAZINE [Concomitant]
     Indication: DRUG USE FOR UNKNOWN INDICATION
     Route: 048
  5. BETA BLOCKER NOS [Concomitant]
     Indication: DRUG USE FOR UNKNOWN INDICATION

REACTIONS (5)
  - CARDIAC DISORDER [None]
  - CEREBRAL HAEMORRHAGE [None]
  - ELECTROCARDIOGRAM QT PROLONGED [None]
  - FALL [None]
  - LOSS OF CONSCIOUSNESS [None]
